FAERS Safety Report 19499509 (Version 1)
Quarter: 2021Q3

REPORT INFORMATION
  Report Type: Spontaneous
  Country: GB (occurrence: GB)
  Receive Date: 20210706
  Receipt Date: 20210706
  Transmission Date: 20211014
  Serious: Yes (Other)
  Sender: FDA-Public Use
  Company Number: GB-ALLERGAN-2124467US

PATIENT
  Sex: Male

DRUGS (4)
  1. IMRALDI [Suspect]
     Active Substance: ADALIMUMAB
     Indication: PSORIATIC ARTHROPATHY
     Dosage: 40 MG, Q2WEEKS
     Route: 058
     Dates: start: 20210326
  2. DEX UNK (DEXAMETHASONE) [Suspect]
     Active Substance: DEXAMETHASONE
     Indication: PRODUCT USED FOR UNKNOWN INDICATION
     Dosage: UNK
     Route: 065
  3. ADALIMUMAB [Suspect]
     Active Substance: ADALIMUMAB
     Indication: PRODUCT USED FOR UNKNOWN INDICATION
     Dosage: UNK
     Route: 065
  4. ZOLADEX [Concomitant]
     Active Substance: GOSERELIN ACETATE
     Indication: PRODUCT USED FOR UNKNOWN INDICATION
     Dosage: UNK
     Route: 065

REACTIONS (12)
  - Nervous system disorder [Unknown]
  - Therapeutic product effect incomplete [Unknown]
  - Pain in extremity [Unknown]
  - Pollakiuria [Unknown]
  - Wrong technique in product usage process [Unknown]
  - Pain [Unknown]
  - Tremor [Unknown]
  - Injection site pain [Unknown]
  - Prostate cancer [Unknown]
  - Walking aid user [Unknown]
  - Muscle spasms [Unknown]
  - Sleep disorder [Unknown]
